FAERS Safety Report 5923339-7 (Version None)
Quarter: 2008Q4

REPORT INFORMATION
  Report Type: 
  Country: None (occurrence: None)
  Receive Date: 20081020
  Receipt Date: 20081015
  Transmission Date: 20090506
  Serious: Yes (Hospitalization, Other)
  Sender: FDA-Public Use
  Company Number: FR-AVENTIS-200815576EU

PATIENT
  Age: 46 Year
  Sex: Female

DRUGS (9)
  1. ENOXAPARIN SODIUM [Suspect]
     Indication: PULMONARY EMBOLISM
     Route: 058
     Dates: start: 20080923, end: 20080926
  2. WARFARIN SODIUM [Suspect]
     Indication: PULMONARY EMBOLISM
     Route: 048
     Dates: start: 20080923, end: 20080925
  3. WARFARIN SODIUM [Suspect]
     Route: 048
     Dates: start: 20080925, end: 20080930
  4. WARFARIN SODIUM [Suspect]
     Route: 048
     Dates: start: 20081004, end: 20081005
  5. WARFARIN SODIUM [Suspect]
     Route: 048
     Dates: start: 20081005
  6. RISPERDAL [Concomitant]
     Indication: DEPRESSION
     Route: 048
     Dates: start: 20030101
  7. TRANXENE [Concomitant]
     Indication: DEPRESSION
     Route: 048
     Dates: start: 20080101
  8. DOLIPRANE [Concomitant]
     Indication: PULMONARY EMBOLISM
     Route: 048
     Dates: start: 20080923
  9. NOROXIN [Concomitant]
     Route: 048
     Dates: start: 20080923, end: 20081004

REACTIONS (1)
  - LIVER FUNCTION TEST ABNORMAL [None]
